FAERS Safety Report 8783086 (Version 2)
Quarter: 2012Q4

REPORT INFORMATION
  Report Type: 
  Country: US (occurrence: US)
  Receive Date: 20120913
  Receipt Date: 20121113
  Transmission Date: 20130627
  Serious: No
  Sender: FDA-Public Use
  Company Number: US-ASTRAZENECA-2012SE65431

PATIENT
  Age: 91 Year
  Sex: Male

DRUGS (1)
  1. SEROQUEL XR [Suspect]
     Indication: DEMENTIA
     Route: 048

REACTIONS (3)
  - Sleep apnoea syndrome [Unknown]
  - Drug ineffective [Unknown]
  - Off label use [Unknown]
